FAERS Safety Report 8165632-6 (Version None)
Quarter: 2012Q1

REPORT INFORMATION
  Report Type: 
  Country: None (occurrence: None)
  Receive Date: 20120103
  Receipt Date: 20111018
  Transmission Date: 20120608
  Serious: No
  Sender: FDA-Public Use
  Company Number: AE-2011-002469

PATIENT
  Sex: Male

DRUGS (3)
  1. INCIVEK [Suspect]
     Dosage: (750 MG, 7-9 HOURS), ORAL
     Route: 048
     Dates: start: 20110930
  2. PEGASYS [Concomitant]
  3. RIBAVIRIN [Concomitant]

REACTIONS (3)
  - RASH [None]
  - HEADACHE [None]
  - PRURITUS GENERALISED [None]
